FAERS Safety Report 13962101 (Version 4)
Quarter: 2017Q4

REPORT INFORMATION
  Report Type: Spontaneous
  Country: US (occurrence: US)
  Receive Date: 20170912
  Receipt Date: 20171219
  Transmission Date: 20180320
  Serious: No
  Sender: FDA-Public Use
  Company Number: US-LUNDBECK-DKLU2036513

PATIENT
  Age: 77 Year
  Sex: Male

DRUGS (6)
  1. NORTHERA [Suspect]
     Active Substance: DROXIDOPA
     Route: 048
     Dates: start: 20170815
  2. NORTHERA [Suspect]
     Active Substance: DROXIDOPA
     Dosage: AT AM
     Route: 048
  3. NORTHERA [Suspect]
     Active Substance: DROXIDOPA
     Indication: PARKINSON^S DISEASE
     Dosage: SCHEDULE B; TITRATION COMPLETE
     Route: 048
     Dates: start: 20170816
  4. NORTHERA [Suspect]
     Active Substance: DROXIDOPA
     Dosage: EVENING
     Route: 048
  5. NORTHERA [Suspect]
     Active Substance: DROXIDOPA
     Indication: ORTHOSTATIC HYPOTENSION
     Dosage: SCHEDULE B; TITRATION COMPLETE
     Route: 048
     Dates: start: 20170828
  6. NORTHERA [Suspect]
     Active Substance: DROXIDOPA
     Dosage: MID DAY
     Route: 048

REACTIONS (10)
  - Hypersomnia [Unknown]
  - Blood pressure orthostatic abnormal [Unknown]
  - Blood pressure decreased [Unknown]
  - Muscular weakness [Unknown]
  - Fatigue [Not Recovered/Not Resolved]
  - Feeling abnormal [Unknown]
  - Asthenia [Recovered/Resolved]
  - Somnolence [Recovered/Resolved]
  - Malaise [Unknown]
  - Hypertension [Recovered/Resolved]

NARRATIVE: CASE EVENT DATE: 201708
